FAERS Safety Report 20082537 (Version 8)
Quarter: 2022Q1

REPORT INFORMATION
  Report Type: Report from Study
  Country: FR (occurrence: None)
  Receive Date: 20211117
  Receipt Date: 20220308
  Transmission Date: 20220424
  Serious: Yes (Hospitalization)
  Sender: FDA-Public Use
  Company Number: FR-Eisai Medical Research-EC-2021-102682

PATIENT
  Age: 65 Year
  Sex: Male
  Weight: 42 kg

DRUGS (13)
  1. LENVATINIB [Suspect]
     Active Substance: LENVATINIB
     Indication: Malignant melanoma
     Dosage: STARTING DOSE AT 20 MILLIGRAMS, FLUCTUATED DOSAGE
     Route: 048
     Dates: start: 20201109, end: 20211028
  2. LENVATINIB [Suspect]
     Active Substance: LENVATINIB
     Route: 048
     Dates: start: 20211029, end: 20211029
  3. PEMBROLIZUMAB [Suspect]
     Active Substance: PEMBROLIZUMAB
     Indication: Malignant melanoma
     Route: 041
     Dates: start: 20201109, end: 20210830
  4. PEMBROLIZUMAB [Suspect]
     Active Substance: PEMBROLIZUMAB
     Route: 041
     Dates: start: 20211011, end: 20211011
  5. QUAVONLIMAB [Suspect]
     Active Substance: QUAVONLIMAB
     Indication: Malignant melanoma
     Route: 041
     Dates: start: 20201109, end: 20210830
  6. QUAVONLIMAB [Suspect]
     Active Substance: QUAVONLIMAB
     Route: 041
     Dates: start: 20211011, end: 20211011
  7. NEURONTIN [Concomitant]
     Active Substance: GABAPENTIN
     Dates: start: 20201013
  8. MINERAL OIL [Concomitant]
     Active Substance: MINERAL OIL
     Dates: start: 20201013
  9. MORPHINE SULFATE [Concomitant]
     Active Substance: MORPHINE SULFATE
     Dates: start: 20201013
  10. SKENAN [Concomitant]
     Active Substance: MORPHINE SULFATE
     Dates: start: 20201013
  11. DOLIPRANE [Concomitant]
     Active Substance: ACETAMINOPHEN
     Dates: start: 20201013
  12. DUPHALAC [Concomitant]
     Active Substance: LACTULOSE
     Dates: start: 20201013
  13. FORTIMEL PROTEIN [Concomitant]
     Dates: start: 20210201

REACTIONS (1)
  - Acute coronary syndrome [Recovered/Resolved with Sequelae]

NARRATIVE: CASE EVENT DATE: 20211029
